FAERS Safety Report 6427760-2 (Version None)
Quarter: 2009Q4

REPORT INFORMATION
  Report Type: 
  Country: None (occurrence: None)
  Receive Date: 20091105
  Receipt Date: 20091023
  Transmission Date: 20100525
  Serious: Yes (Hospitalization, Other)
  Sender: FDA-Public Use
  Company Number: GB-ELI_LILLY_AND_COMPANY-GB200910006332

PATIENT
  Sex: Female
  Weight: 53 kg

DRUGS (3)
  1. PEMETREXED [Suspect]
     Indication: NON-SMALL CELL LUNG CANCER
     Dosage: 850 MG, EVERY 3 WEEKS
     Route: 042
     Dates: start: 20090901
  2. FOLIC ACID [Concomitant]
     Indication: PROPHYLAXIS
     Dosage: UNK, UNK
     Dates: start: 20090827
  3. PARACETAMOL [Concomitant]
     Indication: PAIN

REACTIONS (2)
  - ANAEMIA [None]
  - VENA CAVA THROMBOSIS [None]
